FAERS Safety Report 9996344 (Version 1)
Quarter: 2014Q1

REPORT INFORMATION
  Report Type: Spontaneous
  Country: CA (occurrence: CA)
  Receive Date: 20140311
  Receipt Date: 20140311
  Transmission Date: 20141002
  Serious: Yes (Death, Other)
  Sender: FDA-Public Use
  Company Number: CA-PFIZER INC-2014065251

PATIENT
  Age: 76 Year
  Sex: Female

DRUGS (13)
  1. REVATIO [Suspect]
     Indication: PULMONARY ARTERIAL HYPERTENSION
     Dosage: 20 MG, 3X/DAY
     Route: 048
     Dates: start: 20140215
  2. DOCUSATE SODIUM [Concomitant]
     Dosage: UNK
  3. HYDROMORPHONE [Concomitant]
     Dosage: UNK
  4. ELTROXIN [Concomitant]
     Dosage: UNK
  5. VENLAFAXINE [Concomitant]
     Dosage: UNK
  6. LONITEN [Concomitant]
     Dosage: UNK
  7. FUROSEMIDE [Concomitant]
     Dosage: UNK
  8. IRBESARTAN [Concomitant]
     Dosage: UNK
  9. PREDNISONE [Concomitant]
     Dosage: UNK
  10. FE [Concomitant]
     Dosage: UNK
  11. GLUCONATE [Concomitant]
     Dosage: UNK
  12. LORAZEPAM [Concomitant]
     Dosage: UNK
  13. AMLODIPINE [Concomitant]
     Dosage: UNK

REACTIONS (1)
  - Death [Fatal]
